FAERS Safety Report 7062510-0 (Version None)
Quarter: 2010Q4

REPORT INFORMATION
  Report Type: 
  Country: None (occurrence: None)
  Receive Date: 20101026
  Receipt Date: 20091120
  Transmission Date: 20110411
  Serious: No
  Sender: FDA-Public Use
  Company Number: US-PFIZER INC-2009278233

PATIENT
  Sex: Male
  Weight: 113 kg

DRUGS (3)
  1. LIPITOR [Suspect]
     Indication: BLOOD CHOLESTEROL ABNORMAL
     Dosage: 20 MG, 1X/DAY
     Dates: start: 20060101, end: 20090101
  2. ASACOL [Concomitant]
     Dosage: UNK
  3. CLARITIN-D [Concomitant]
     Dosage: UNK

REACTIONS (3)
  - ARTHRALGIA [None]
  - MUSCLE ENZYME INCREASED [None]
  - MYALGIA [None]
